FAERS Safety Report 21685755 (Version 6)
Quarter: 2023Q1

REPORT INFORMATION
  Report Type: Report from Study
  Country: AR (occurrence: AR)
  Receive Date: 20221206
  Receipt Date: 20230301
  Transmission Date: 20230417
  Serious: Yes (Hospitalization, Other)
  Sender: FDA-Public Use
  Company Number: AR-AMGEN-ARGSL2022128364

PATIENT
  Age: 75 Year
  Sex: Male

DRUGS (1)
  1. VECTIBIX [Suspect]
     Active Substance: PANITUMUMAB
     Indication: Colorectal cancer metastatic
     Dosage: UNK, Q2WK (EVERY 14 DAYS)
     Route: 065
     Dates: start: 20220714

REACTIONS (14)
  - Headache [Unknown]
  - Dehydration [Not Recovered/Not Resolved]
  - Pyrexia [Unknown]
  - Asthenia [Not Recovered/Not Resolved]
  - Syncope [Unknown]
  - Hypotension [Not Recovered/Not Resolved]
  - Pain in extremity [Unknown]
  - Rash [Not Recovered/Not Resolved]
  - Weight decreased [Not Recovered/Not Resolved]
  - Decreased appetite [Not Recovered/Not Resolved]
  - Dry skin [Not Recovered/Not Resolved]
  - Depression [Not Recovered/Not Resolved]
  - Malaise [Not Recovered/Not Resolved]
  - Anaemia [Unknown]

NARRATIVE: CASE EVENT DATE: 20220101
